FAERS Safety Report 16296072 (Version 3)
Quarter: 2019Q4

REPORT INFORMATION
  Report Type: Spontaneous
  Country: US (occurrence: US)
  Receive Date: 20190509
  Receipt Date: 20191202
  Transmission Date: 20200122
  Serious: No
  Sender: FDA-Public Use
  Company Number: US-SA-2019SA123718

PATIENT
  Age: 71 Year
  Sex: Female

DRUGS (2)
  1. PRALUENT [Suspect]
     Active Substance: ALIROCUMAB
     Dosage: 150 MG, QOW
     Route: 058
     Dates: start: 20190207
  2. PRALUENT [Suspect]
     Active Substance: ALIROCUMAB
     Indication: TRANSIENT ISCHAEMIC ATTACK
     Dosage: 150 MG, QOW
     Route: 058
     Dates: start: 20190129, end: 2019

REACTIONS (3)
  - Product dose omission [Unknown]
  - Herpes zoster [Not Recovered/Not Resolved]
  - Dizziness [Not Recovered/Not Resolved]

NARRATIVE: CASE EVENT DATE: 2019
